FAERS Safety Report 20689143 (Version 1)
Quarter: 2022Q2

REPORT INFORMATION
  Report Type: Spontaneous
  Country: FR (occurrence: FR)
  Receive Date: 20220408
  Receipt Date: 20220408
  Transmission Date: 20220721
  Serious: Yes (Hospitalization)
  Sender: FDA-Public Use
  Company Number: None

PATIENT
  Age: 64 Year
  Sex: Female

DRUGS (2)
  1. CAPECITABINE [Suspect]
     Active Substance: CAPECITABINE
     Indication: Neuroendocrine tumour
     Route: 048
     Dates: start: 20220117, end: 20220129
  2. TEMODAL [Suspect]
     Active Substance: TEMOZOLOMIDE
     Indication: Neuroendocrine tumour
     Dosage: NR
     Route: 048
     Dates: start: 20220127, end: 20220129

REACTIONS (4)
  - Hepatitis B reactivation [Not Recovered/Not Resolved]
  - Acute hepatitis B [Not Recovered/Not Resolved]
  - Hepatic failure [Not Recovered/Not Resolved]
  - Off label use [Unknown]

NARRATIVE: CASE EVENT DATE: 20220129
